FAERS Safety Report 9905332 (Version 1)
Quarter: 2014Q1

REPORT INFORMATION
  Report Type: Spontaneous
  Country: US (occurrence: None)
  Receive Date: 20140218
  Receipt Date: 20140218
  Transmission Date: 20141002
  Serious: Yes (Life-Threatening, Hospitalization)
  Sender: FDA-Public Use
  Company Number: None

PATIENT
  Age: 3 Month
  Sex: Male
  Weight: 5.1 kg

DRUGS (1)
  1. L-CITRULLINE [Suspect]
     Indication: ORNITHINE TRANSCARBAMOYLASE DEFICIENCY
     Route: 048

REACTIONS (3)
  - Hyperammonaemia [None]
  - Drug level decreased [None]
  - Product quality issue [None]
